FAERS Safety Report 7215293-5 (Version None)
Quarter: 2011Q1

REPORT INFORMATION
  Report Type: 
  Country: None (occurrence: None)
  Receive Date: 20110107
  Receipt Date: 20110105
  Transmission Date: 20110831
  Serious: Yes (Death)
  Sender: FDA-Public Use
  Company Number: PHHY2011US00812

PATIENT
  Sex: Male

DRUGS (2)
  1. STEROIDS NOS [Concomitant]
  2. GLEEVEC [Suspect]
     Indication: LEUKAEMIA
     Dosage: 400 MG, DAILY
     Route: 046
     Dates: start: 20050305

REACTIONS (1)
  - ANEURYSM [None]
